FAERS Safety Report 4357085-0 (Version None)
Quarter: 2004Q2

REPORT INFORMATION
  Report Type: 
  Country: None (occurrence: None)
  Receive Date: 20040507
  Receipt Date: 20040429
  Transmission Date: 20050107
  Serious: Yes (Hospitalization)
  Sender: FDA-Public Use
  Company Number: 2004029073

PATIENT
  Age: 58 Year
  Sex: Male

DRUGS (3)
  1. SORTIS (ATORVASTATIN) [Suspect]
     Indication: CORONARY ARTERY DISEASE
  2. ATENOLOL [Concomitant]
  3. ACETYLSALICYLIC ACID SRT [Concomitant]

REACTIONS (1)
  - HAEMOLYTIC ANAEMIA [None]
